FAERS Safety Report 4473246-4 (Version None)
Quarter: 2004Q4

REPORT INFORMATION
  Report Type: 
  Country: None (occurrence: None)
  Receive Date: 20041013
  Receipt Date: 20040909
  Transmission Date: 20050328
  Serious: Yes (Other)
  Sender: FDA-Public Use
  Company Number: PHBS2004JP12105

PATIENT
  Age: 71 Year
  Sex: Female

DRUGS (5)
  1. DIOVAN [Suspect]
     Dosage: 80 MG/DAY
     Route: 048
  2. LASIX [Concomitant]
     Dosage: 100 MG, UNK
     Route: 048
  3. TANKARU [Concomitant]
     Dosage: 1.5 G, UNK
     Route: 048
  4. CARVEDILOL [Concomitant]
     Dosage: 5 MG, UNK
     Route: 048
  5. ADALAT [Concomitant]
     Dosage: 20 MG, UNK
     Route: 048

REACTIONS (1)
  - ANAPHYLACTIC SHOCK [None]
